FAERS Safety Report 11216521 (Version 3)
Quarter: 2015Q3

REPORT INFORMATION
  Report Type: Spontaneous
  Country: JP (occurrence: JP)
  Receive Date: 20150624
  Receipt Date: 20150811
  Transmission Date: 20151125
  Serious: Yes (Death, Hospitalization, Other)
  Sender: FDA-Public Use
  Company Number: JP-BAYER-2015-363745

PATIENT
  Age: 79 Year
  Sex: Male
  Weight: 62 kg

DRUGS (1)
  1. NEXAVAR [Suspect]
     Active Substance: SORAFENIB
     Indication: HEPATOCELLULAR CARCINOMA
     Dosage: 400 MG, BID
     Route: 048
     Dates: start: 20150601, end: 20150621

REACTIONS (5)
  - Oedema peripheral [Fatal]
  - Meningitis bacterial [None]
  - Sepsis [Fatal]
  - Cellulitis [Fatal]
  - Necrotising fasciitis [None]

NARRATIVE: CASE EVENT DATE: 201506
